FAERS Safety Report 9037086 (Version 3)
Quarter: 2013Q1

REPORT INFORMATION
  Report Type: Spontaneous
  Country: US (occurrence: None)
  Receive Date: 20130115
  Receipt Date: 20130212
  Transmission Date: 20140127
  Serious: Yes (Other)
  Sender: FDA-Public Use
  Company Number: 2013P1000248

PATIENT
  Age: 18 Year
  Sex: Female

DRUGS (3)
  1. MYORISAN [Suspect]
     Indication: ACNE CYSTIC
     Route: 048
     Dates: start: 20121204, end: 20130110
  2. MYORISAN 20 MG (NO PREF. NAME) [Suspect]
     Route: 048
     Dates: start: 20121204, end: 20130110
  3. NUVARING [Concomitant]

REACTIONS (5)
  - Pregnancy with contraceptive device [None]
  - Exposure during pregnancy [None]
  - Lip dry [None]
  - Nasal dryness [None]
  - Rash [None]
